FAERS Safety Report 4782942-0 (Version None)
Quarter: 2005Q3

REPORT INFORMATION
  Report Type: 
  Country: None (occurrence: None)
  Receive Date: 20050928
  Receipt Date: 20050928
  Transmission Date: 20060218
  Serious: Yes (Hospitalization)
  Sender: FDA-Public Use
  Company Number: None

PATIENT
  Age: 69 Year
  Sex: Female
  Weight: 109 kg

DRUGS (12)
  1. LIPITOR [Suspect]
     Indication: BLOOD CHOLESTEROL INCREASED
     Dosage: 40 MG PO QD
     Route: 048
  2. METOPROLOL [Suspect]
     Indication: CARDIAC FAILURE CONGESTIVE
     Dosage: 25 MG PO QD
     Route: 048
  3. METOPROLOL [Suspect]
     Indication: CORONARY ARTERY DISEASE
     Dosage: 25 MG PO QD
     Route: 048
  4. POTASSIUM [Concomitant]
  5. SPIRONOLACTONE [Concomitant]
  6. LISINOPRIL [Concomitant]
  7. STARLIX [Concomitant]
  8. ZYPREXA [Concomitant]
  9. IMDUR [Concomitant]
  10. PLAVIX [Concomitant]
  11. LASIX [Concomitant]
  12. ACTOS [Concomitant]

REACTIONS (6)
  - ASTHENIA [None]
  - BRADYCARDIA [None]
  - FALL [None]
  - HYPERKALAEMIA [None]
  - HYPOAESTHESIA [None]
  - RENAL IMPAIRMENT [None]
